FAERS Safety Report 4815519-9 (Version None)
Quarter: 2005Q4

REPORT INFORMATION
  Report Type: 
  Country: None (occurrence: None)
  Receive Date: 20051028
  Receipt Date: 20051028
  Transmission Date: 20060501
  Serious: Yes (Hospitalization)
  Sender: FDA-Public Use
  Company Number: None

PATIENT
  Age: 60 Year
  Sex: Male
  Weight: 206 kg

DRUGS (9)
  1. QUETIAPINE FUMARATE [Suspect]
     Indication: POST-TRAUMATIC STRESS DISORDER
     Dosage: 300 MG PO HS
     Route: 048
     Dates: start: 20050908, end: 20051016
  2. FUROSEMIDE [Concomitant]
  3. ASPIRIN [Concomitant]
  4. OXYCODONE AND ACETAMINOPHEN [Concomitant]
  5. SIMVASTATIN/EZETIMIBE [Concomitant]
  6. LOSARTAN [Concomitant]
  7. MALOXICAM [Concomitant]
  8. CLOPIDOGREL BISULFATE [Concomitant]
  9. NITROGLYCERIN [Concomitant]

REACTIONS (7)
  - ASTHENIA [None]
  - DIZZINESS [None]
  - FEELING ABNORMAL [None]
  - HYPOAESTHESIA [None]
  - HYPOTENSION [None]
  - NAUSEA [None]
  - PARAESTHESIA [None]
